FAERS Safety Report 21461292 (Version 1)
Quarter: 2022Q4

REPORT INFORMATION
  Report Type: Spontaneous
  Country: BG (occurrence: BG)
  Receive Date: 20221015
  Receipt Date: 20221015
  Transmission Date: 20230113
  Serious: Yes (Hospitalization, Other)
  Sender: FDA-Public Use
  Company Number: BG-AMGEN-BGRSP2022172880

PATIENT
  Age: 67 Year
  Sex: Male

DRUGS (13)
  1. VECTIBIX [Suspect]
     Active Substance: PANITUMUMAB
     Indication: Colorectal cancer metastatic
     Dosage: 6 MILLIGRAM/KILOGRAM
     Route: 065
     Dates: start: 202009
  2. OXALIPLATIN [Suspect]
     Active Substance: OXALIPLATIN
     Indication: Colon cancer
     Dosage: 85 MILLIGRAM/SQ. METER
     Route: 065
     Dates: start: 202009
  3. OXALIPLATIN [Suspect]
     Active Substance: OXALIPLATIN
     Indication: Metastases to liver
  4. LEUCOVORIN CALCIUM [Suspect]
     Active Substance: LEUCOVORIN CALCIUM
     Indication: Colon cancer
     Dosage: 200 MILLIGRAM/SQ. METER
     Route: 065
     Dates: start: 202009
  5. LEUCOVORIN CALCIUM [Suspect]
     Active Substance: LEUCOVORIN CALCIUM
     Indication: Metastases to liver
     Dosage: 400 MILLIGRAM/SQ. METER
     Route: 065
     Dates: start: 2021
  6. FLUOROURACIL [Suspect]
     Active Substance: FLUOROURACIL
     Indication: Colon cancer
     Dosage: 400/600MG/M2
     Route: 065
     Dates: start: 202009
  7. FLUOROURACIL [Suspect]
     Active Substance: FLUOROURACIL
     Indication: Metastases to liver
     Dosage: 400/2400MG/M2
     Route: 065
     Dates: start: 2021
  8. IRINOTECAN [Suspect]
     Active Substance: IRINOTECAN
     Indication: Colon cancer
     Dosage: 180 MILLIGRAM/SQ. METER
     Route: 065
     Dates: start: 2021
  9. IRINOTECAN [Suspect]
     Active Substance: IRINOTECAN
     Indication: Metastases to liver
  10. Lozap [Concomitant]
     Indication: Hypertension
     Dosage: UNK UNK, QD (1 PILL)
     Route: 065
  11. ROSUVASTATIN CALCIUM [Concomitant]
     Active Substance: ROSUVASTATIN CALCIUM
     Indication: Dyslipidaemia
     Dosage: 20 MILLIGRAM, QD (1 PILL)
     Route: 065
  12. DORZOLAMIDE HYDROCHLORIDE\TIMOLOL MALEATE [Concomitant]
     Active Substance: DORZOLAMIDE HYDROCHLORIDE\TIMOLOL MALEATE
     Indication: Open angle glaucoma
     Dosage: UNK UNK, BID 1 DROP IN BOTH EYES
  13. XALATAN [Concomitant]
     Active Substance: LATANOPROST
     Indication: Open angle glaucoma
     Dosage: UNK UNK, QD 1 DROP IN BOTH EYES
     Route: 065

REACTIONS (4)
  - Urinoma [Unknown]
  - Subileus [Unknown]
  - Colorectal cancer metastatic [Unknown]
  - Proctectomy [Unknown]

NARRATIVE: CASE EVENT DATE: 20200914
